FAERS Safety Report 9286394 (Version 1)
Quarter: 2013Q2

REPORT INFORMATION
  Report Type: Spontaneous
  Country: US (occurrence: None)
  Receive Date: 20130510
  Receipt Date: 20130510
  Transmission Date: 20140414
  Serious: Yes (Disabling)
  Sender: FDA-Public Use
  Company Number: None

PATIENT
  Age: 77 Year
  Sex: Female
  Weight: 67.59 kg

DRUGS (4)
  1. AMIODARONE 200MG [Suspect]
     Indication: ATRIAL FIBRILLATION
     Dosage: I DON^T REMEMBER?2-3 MOS
     Route: 048
  2. MULTAQ [Suspect]
     Indication: ATRIAL FIBRILLATION
     Dosage: 6 TO 8 WKS
     Route: 048
  3. SYNTHROID [Concomitant]
  4. WARFARIN [Concomitant]

REACTIONS (10)
  - Muscular weakness [None]
  - Myalgia [None]
  - Pain in extremity [None]
  - Arthralgia [None]
  - Arthralgia [None]
  - Arthralgia [None]
  - Musculoskeletal pain [None]
  - Arthralgia [None]
  - Skin discolouration [None]
  - Activities of daily living impaired [None]
